FAERS Safety Report 12528390 (Version 1)
Quarter: 2016Q3

REPORT INFORMATION
  Report Type: Report from Study
  Country: GB (occurrence: GB)
  Receive Date: 20160705
  Receipt Date: 20160705
  Transmission Date: 20161109
  Serious: Yes (Other)
  Sender: FDA-Public Use
  Company Number: GB-JNJFOC-20160700594

PATIENT
  Age: 56 Year
  Sex: Male
  Weight: 107 kg

DRUGS (2)
  1. METHOTREXATE. [Concomitant]
     Active Substance: METHOTREXATE
     Route: 065
  2. STELARA [Suspect]
     Active Substance: USTEKINUMAB
     Indication: PSORIASIS
     Route: 058
     Dates: start: 20141205, end: 20150303

REACTIONS (2)
  - Gastric neoplasm [Not Recovered/Not Resolved]
  - Demyelination [Unknown]

NARRATIVE: CASE EVENT DATE: 20150701
